FAERS Safety Report 18149812 (Version 1)
Quarter: 2020Q3

REPORT INFORMATION
  Report Type: Spontaneous
  Country: DE (occurrence: DE)
  Receive Date: 20200814
  Receipt Date: 20200814
  Transmission Date: 20201103
  Serious: Yes (Hospitalization)
  Sender: FDA-Public Use
  Company Number: DE-SA-2020SA209034

PATIENT

DRUGS (3)
  1. BISOPROLOL [Concomitant]
     Active Substance: BISOPROLOL
     Dosage: 5 MG, 1?0?0?0,
     Route: 048
  2. LETROZOLE. [Suspect]
     Active Substance: LETROZOLE
     Dosage: 2.5 MG, QD, 2.5 MG, 1?0?0?0, TABLET
     Route: 048
  3. ENOXAPARIN SODIUM. [Suspect]
     Active Substance: ENOXAPARIN SODIUM
     Dosage: 80 MG, BID, 80 MG, 1?0?1?0, AMPULE
     Route: 058

REACTIONS (2)
  - Peripheral swelling [Unknown]
  - Erythema [Unknown]

NARRATIVE: CASE EVENT DATE: 20200101
